FAERS Safety Report 12550657 (Version 4)
Quarter: 2016Q3

REPORT INFORMATION
  Report Type: Spontaneous
  Country: BR (occurrence: BR)
  Receive Date: 20160712
  Receipt Date: 20160930
  Transmission Date: 20161109
  Serious: Yes (Life-Threatening, Hospitalization, Other)
  Sender: FDA-Public Use
  Company Number: BR-ALEXION PHARMACEUTICALS INC-A201605002

PATIENT
  Age: 3 Month
  Sex: Female

DRUGS (2)
  1. SEBELIPASE ALFA [Suspect]
     Active Substance: SEBELIPASE ALFA
     Indication: LYSOSOMAL ACID LIPASE DEFICIENCY
     Dosage: 3 MG/KG, QW
     Route: 042
     Dates: start: 20160307
  2. SEBELIPASE ALFA [Suspect]
     Active Substance: SEBELIPASE ALFA
     Dosage: 5 MG/KG, QW
     Route: 042

REACTIONS (10)
  - Vomiting [Unknown]
  - Irritability [Unknown]
  - Sepsis [Not Recovered/Not Resolved]
  - Pneumonia [Recovering/Resolving]
  - Acute abdomen [Recovering/Resolving]
  - Bronchiolitis [Recovering/Resolving]
  - Respiratory failure [Recovering/Resolving]
  - Pyrexia [Unknown]
  - Malnutrition [Unknown]
  - Abdominal distension [Unknown]

NARRATIVE: CASE EVENT DATE: 20160626
